FAERS Safety Report 6536788-3 (Version None)
Quarter: 2010Q1

REPORT INFORMATION
  Report Type: 
  Country: None (occurrence: None)
  Receive Date: 20100113
  Receipt Date: 20100108
  Transmission Date: 20100710
  Serious: Yes (Death, Other)
  Sender: FDA-Public Use
  Company Number: CN-CELGENEUS-035-20785-10010500

PATIENT

DRUGS (7)
  1. THALOMID [Suspect]
     Indication: MULTIPLE MYELOMA
     Dosage: 100-300MG
     Route: 048
  2. DEXAMETHASONE [Suspect]
     Indication: MULTIPLE MYELOMA
     Dosage: 20-40MG
     Route: 048
  3. DEXAMETHASONE [Suspect]
     Dosage: 20-40MG
     Route: 048
  4. FAMOTIDINE [Concomitant]
     Route: 065
  5. OMEPRAZOLE [Concomitant]
     Route: 065
  6. ANTACID TAB [Concomitant]
     Route: 065
  7. LAXATIVES [Concomitant]
     Indication: CONSTIPATION
     Route: 065

REACTIONS (22)
  - ARRHYTHMIA [None]
  - ASTHENIA [None]
  - BLOOD GLUCOSE INCREASED [None]
  - CONSTIPATION [None]
  - DIZZINESS [None]
  - DRY SKIN [None]
  - FACE OEDEMA [None]
  - FATIGUE [None]
  - HYPOTHYROIDISM [None]
  - INFECTION [None]
  - LEUKAEMIA PLASMACYTIC [None]
  - LUNG INFECTION [None]
  - MOOD ALTERED [None]
  - NEUROPATHY PERIPHERAL [None]
  - OEDEMA PERIPHERAL [None]
  - PLATELET COUNT DECREASED [None]
  - RASH [None]
  - SINUS TACHYCARDIA [None]
  - SOMNOLENCE [None]
  - THROMBOSIS [None]
  - VARICOSE VEIN [None]
  - WHITE BLOOD CELL COUNT DECREASED [None]
